FAERS Safety Report 22789440 (Version 8)
Quarter: 2024Q3

REPORT INFORMATION
  Report Type: Report from Study
  Country: CA (occurrence: CA)
  Receive Date: 20230804
  Receipt Date: 20240713
  Transmission Date: 20241016
  Serious: Yes (Hospitalization, Other)
  Sender: ABBVIE
  Company Number: CA-ABBVIE-5354010

PATIENT
  Sex: Female

DRUGS (5)
  1. SKYRIZI [Suspect]
     Active Substance: RISANKIZUMAB-RZAA
     Indication: Crohn^s disease
     Dosage: FREQUENCY TEXT: WEEK 4, FIRST ADMIN DATE: 2023
     Route: 058
  2. SKYRIZI [Suspect]
     Active Substance: RISANKIZUMAB-RZAA
     Route: 058
  3. SKYRIZI [Suspect]
     Active Substance: RISANKIZUMAB-RZAA
     Route: 058
  4. SKYRIZI [Suspect]
     Active Substance: RISANKIZUMAB-RZAA
     Indication: Crohn^s disease
     Dosage: THE START OF SKYRIZI 600 MG IN DEXTROSE 5% IN WATER 250 ML ADMINISTERED ON A PUMP IN 60 MINUTES, ...
     Route: 042
     Dates: start: 20230622
  5. ZOSTER [Concomitant]
     Indication: Product used for unknown indication

REACTIONS (22)
  - Colectomy [Recovered/Resolved]
  - Headache [Unknown]
  - Palpitations [Unknown]
  - Colectomy [Unknown]
  - Hypotension [Unknown]
  - Stoma site haemorrhage [Recovered/Resolved]
  - Dehydration [Unknown]
  - Fatigue [Unknown]
  - Faeces soft [Unknown]
  - Dizziness [Unknown]
  - Chills [Unknown]
  - Diarrhoea [Unknown]
  - Device issue [Unknown]
  - Asthenia [Unknown]
  - Transfusion [Unknown]
  - Abdominal pain lower [Unknown]
  - Device issue [Unknown]
  - Skin papilloma [Unknown]
  - Stoma site reaction [Not Recovered/Not Resolved]
  - Abdominal pain upper [Not Recovered/Not Resolved]
  - Loss of personal independence in daily activities [Unknown]
  - Stoma site haemorrhage [Recovered/Resolved]

NARRATIVE: CASE EVENT DATE: 20230101
